FAERS Safety Report 6595237-X (Version None)
Quarter: 2010Q1

REPORT INFORMATION
  Report Type: 
  Country: None (occurrence: None)
  Receive Date: 20100212
  Receipt Date: 20100128
  Transmission Date: 20100710
  Serious: Yes (Other)
  Sender: FDA-Public Use
  Company Number: 005787

PATIENT

DRUGS (1)
  1. KEPPRA [Suspect]
     Indication: CONVULSION
     Dosage: INTRAVENOUS (NOT OTHERWISE SPECIFIED)
     Route: 042

REACTIONS (1)
  - INCORRECT STORAGE OF DRUG [None]
